FAERS Safety Report 18956456 (Version 1)
Quarter: 2021Q1

REPORT INFORMATION
  Report Type: Spontaneous
  Country: FR (occurrence: FR)
  Receive Date: 20210302
  Receipt Date: 20210302
  Transmission Date: 20210420
  Serious: Yes (Other)
  Sender: FDA-Public Use
  Company Number: FR-SUN PHARMACEUTICAL INDUSTRIES LTD-2021R1-282485

PATIENT
  Age: 66 Year
  Sex: Male

DRUGS (2)
  1. LEVODOPA (L?DOPA)/BENSERAZIDE [Concomitant]
     Indication: PARKINSON^S DISEASE
     Dosage: UNK
     Route: 065
  2. PRAMIPEXOLE. [Suspect]
     Active Substance: PRAMIPEXOLE
     Indication: PARKINSON^S DISEASE
     Dosage: 1.4 AND 2.1 MG PER DAY
     Route: 065
     Dates: start: 2007, end: 201411

REACTIONS (1)
  - Hypersexuality [Recovering/Resolving]

NARRATIVE: CASE EVENT DATE: 2014
